FAERS Safety Report 22637273 (Version 1)
Quarter: 2023Q2

REPORT INFORMATION
  Report Type: Spontaneous
  Country: US (occurrence: None)
  Receive Date: 20230622
  Receipt Date: 20230622
  Transmission Date: 20230722
  Serious: No
  Sender: FDA-Public Use
  Company Number: None

PATIENT
  Sex: Female

DRUGS (14)
  1. LENALIDOMIDE [Suspect]
     Active Substance: LENALIDOMIDE
     Indication: Plasma cell myeloma
     Dosage: OTHER FREQUENCY : 21 D ON, 7 D OFF;?
     Route: 048
  2. AMLODIPINE [Concomitant]
     Active Substance: AMLODIPINE BESYLATE
  3. AZITHROMYCIN [Concomitant]
     Active Substance: AZITHROMYCIN
  4. DEXAMETHASONE [Concomitant]
     Active Substance: DEXAMETHASONE
  5. FENOFIBRATE [Concomitant]
     Active Substance: FENOFIBRATE
  6. IPRATROPIUM BROMIDE NASAL [Concomitant]
  7. XYZAL [Concomitant]
     Active Substance: LEVOCETIRIZINE DIHYDROCHLORIDE
  8. SYNTHROID [Concomitant]
     Active Substance: LEVOTHYROXINE SODIUM
  9. MEGARED ADVANCED [Concomitant]
  10. PRAVASTATIN [Concomitant]
     Active Substance: PRAVASTATIN
  11. PROLIA [Concomitant]
     Active Substance: DENOSUMAB
  12. SUCRALFATE [Concomitant]
     Active Substance: SUCRALFATE
  13. VENTOLIN HFA [Concomitant]
     Active Substance: ALBUTEROL SULFATE
  14. VICKS DAYQUIL/NYQUIL [Concomitant]

REACTIONS (1)
  - COVID-19 [None]
